FAERS Safety Report 5786283-4 (Version None)
Quarter: 2008Q2

REPORT INFORMATION
  Report Type: 
  Country: None (occurrence: None)
  Receive Date: 20080624
  Receipt Date: 20080613
  Transmission Date: 20081010
  Serious: Yes (Other)
  Sender: FDA-Public Use
  Company Number: GB-PFIZER INC-2008000658

PATIENT
  Sex: Male
  Weight: 101 kg

DRUGS (1)
  1. VIAGRA [Suspect]
     Route: 048

REACTIONS (3)
  - DRUG EFFECT DECREASED [None]
  - OSTEOMYELITIS ACUTE [None]
  - TRANSIENT ISCHAEMIC ATTACK [None]
